FAERS Safety Report 8782918 (Version 1)
Quarter: 2012Q4

REPORT INFORMATION
  Report Type: 
  Country: US (occurrence: US)
  Receive Date: 20120913
  Receipt Date: 20120913
  Transmission Date: 20130627
  Serious: No
  Sender: FDA-Public Use
  Company Number: US-VERTEX PHARMACEUTICAL INC.-AE-2012-010579

PATIENT

DRUGS (8)
  1. INCIVEK [Suspect]
     Indication: HEPATITIS C
     Route: 048
     Dates: start: 201206
  2. PEGINTERFERON ALFA 2A [Concomitant]
     Indication: HEPATITIS C
     Dates: start: 201206
  3. RIBAVIRIN [Concomitant]
     Indication: HEPATITIS C
     Dates: start: 201206
  4. METAGENICS [Concomitant]
  5. LACTOBACILLUS ACIDOPHILLUS [Concomitant]
  6. BIFIDOBACTERIUM [Concomitant]
  7. PROZAC [Concomitant]
  8. PROZAC [Concomitant]

REACTIONS (4)
  - Depression [Unknown]
  - Pyrexia [Unknown]
  - Fatigue [Unknown]
  - Anorectal discomfort [Not Recovered/Not Resolved]
